FAERS Safety Report 11839333 (Version 1)
Quarter: 2015Q4

REPORT INFORMATION
  Report Type: Spontaneous
  Country: GB (occurrence: GB)
  Receive Date: 20151216
  Receipt Date: 20151216
  Transmission Date: 20160305
  Serious: Yes (Other)
  Sender: FDA-Public Use
  Company Number: GB-ACCORD-036170

PATIENT
  Age: 50 Year
  Sex: Male
  Weight: 75 kg

DRUGS (7)
  1. IBUPROFEN. [Concomitant]
     Active Substance: IBUPROFEN
     Dates: start: 20151124
  2. RAMIPRIL. [Suspect]
     Active Substance: RAMIPRIL
     Indication: HYPERTENSION
     Route: 048
     Dates: start: 20150210
  3. AMLODIPINE [Concomitant]
     Active Substance: AMLODIPINE BESYLATE
     Dates: start: 20151124
  4. LORATADINE. [Concomitant]
     Active Substance: LORATADINE
     Dates: start: 20150701
  5. PARACETAMOL [Concomitant]
     Active Substance: ACETAMINOPHEN
     Dosage: TAKE 1 OR 2 4 TIMES/DAY AS REQUIRED
     Dates: start: 20150827, end: 20150910
  6. LOPERAMIDE [Concomitant]
     Active Substance: LOPERAMIDE
     Dosage: 1-2 AS NECESSARY.
     Dates: start: 20150723
  7. OMEPRAZOLE. [Concomitant]
     Active Substance: OMEPRAZOLE
     Dates: start: 20151124

REACTIONS (5)
  - Skin exfoliation [Not Recovered/Not Resolved]
  - Eczema [Unknown]
  - Paraesthesia [Recovered/Resolved]
  - Hypoaesthesia [Unknown]
  - Rash [Unknown]

NARRATIVE: CASE EVENT DATE: 20150430
